FAERS Safety Report 10243098 (Version 1)
Quarter: 2014Q2

REPORT INFORMATION
  Report Type: Spontaneous
  Country: US (occurrence: None)
  Receive Date: 20140616
  Receipt Date: 20140616
  Transmission Date: 20141212
  Serious: Yes (Other)
  Sender: FDA-Public Use
  Company Number: None

PATIENT
  Age: 50 Year
  Sex: Male

DRUGS (1)
  1. STELARA [Suspect]
     Dosage: STRENGTH:  90  INJECTABLE Q 3 MONTHS ?DATES OF USE: APRIL
     Route: 058

REACTIONS (2)
  - Condition aggravated [None]
  - Product process control issue [None]
